FAERS Safety Report 17156169 (Version 1)
Quarter: 2019Q4

REPORT INFORMATION
  Report Type: Spontaneous
  Country: CA (occurrence: CA)
  Receive Date: 20191216
  Receipt Date: 20191216
  Transmission Date: 20200122
  Serious: Yes (Death, Other)
  Sender: FDA-Public Use
  Company Number: CA-PFIZER INC-2019536498

PATIENT
  Age: 67 Year
  Sex: Male

DRUGS (1)
  1. PROPOFOL. [Suspect]
     Active Substance: PROPOFOL
     Indication: EUTHANASIA
     Dosage: 2000 MG, UNK
     Route: 042

REACTIONS (3)
  - Extra dose administered [Fatal]
  - Drug ineffective [Fatal]
  - Off label use [Fatal]
